FAERS Safety Report 24812027 (Version 1)
Quarter: 2025Q1

REPORT INFORMATION
  Report Type: Spontaneous
  Country: US (occurrence: None)
  Receive Date: 20250106
  Receipt Date: 20250106
  Transmission Date: 20250409
  Serious: No
  Sender: FDA-CTU
  Company Number: None

PATIENT
  Age: 63 Year
  Sex: Female

DRUGS (1)
  1. AMOXICILLIN [Suspect]
     Active Substance: AMOXICILLIN

REACTIONS (6)
  - Wrong technique in product usage process [None]
  - Incorrect dose administered [None]
  - Rash [None]
  - Pruritus [None]
  - Hypoaesthesia oral [None]
  - Therapy interrupted [None]
